FAERS Safety Report 20217363 (Version 1)
Quarter: 2021Q4

REPORT INFORMATION
  Report Type: Spontaneous
  Country: CA (occurrence: CA)
  Receive Date: 20211222
  Receipt Date: 20211222
  Transmission Date: 20220303
  Serious: Yes (Hospitalization, Other)
  Sender: FDA-Public Use
  Company Number: CA-PFIZER INC-202101405968

PATIENT
  Age: 36 Year
  Sex: Male
  Weight: 113 kg

DRUGS (2)
  1. XELJANZ [Suspect]
     Active Substance: TOFACITINIB CITRATE
     Indication: Colitis ulcerative
     Dosage: 10 MG, 2X/DAY
     Route: 048
     Dates: start: 2021, end: 2021
  2. PREDNISONE [Concomitant]
     Active Substance: PREDNISONE
     Dosage: 1 DF

REACTIONS (3)
  - Surgery [Recovering/Resolving]
  - Drug ineffective [Unknown]
  - Nightmare [Unknown]

NARRATIVE: CASE EVENT DATE: 20210101
